FAERS Safety Report 15784870 (Version 2)
Quarter: 2019Q1

REPORT INFORMATION
  Report Type: Report from Study
  Country: AU (occurrence: AU)
  Receive Date: 20190103
  Receipt Date: 20190130
  Transmission Date: 20190417
  Serious: Yes (Hospitalization, Other)
  Sender: FDA-Public Use
  Company Number: AU-REGENERON PHARMACEUTICALS, INC.-2018-49561

PATIENT

DRUGS (1)
  1. EYLEA [Suspect]
     Active Substance: AFLIBERCEPT
     Indication: DIABETIC RETINAL OEDEMA
     Dosage: BOTH EYES, TOTAL OF 9 EYLEA DOSE, LAST DOSE PRIOR THE EVENT WAS RECEIVED ON 21-MAR-2018
     Route: 031
     Dates: start: 20170302

REACTIONS (8)
  - Vomiting [Unknown]
  - Eye pain [Recovered/Resolved]
  - Myocardial infarction [Unknown]
  - Anaemia [Unknown]
  - Exophthalmos [Recovered/Resolved]
  - Stress [Unknown]
  - Renal failure [Unknown]
  - Decreased appetite [Recovered/Resolved]

NARRATIVE: CASE EVENT DATE: 201805
